FAERS Safety Report 19419185 (Version 2)
Quarter: 2021Q3

REPORT INFORMATION
  Report Type: Spontaneous
  Country: DE (occurrence: DE)
  Receive Date: 20210615
  Receipt Date: 20210714
  Transmission Date: 20211014
  Serious: Yes (Other)
  Sender: FDA-Public Use
  Company Number: DE-PFIZER INC-2021616669

PATIENT
  Age: 88 Year
  Sex: Male

DRUGS (14)
  1. MOLSIDOMINE [Suspect]
     Active Substance: MOLSIDOMINE
     Dosage: UNK UNK, QD
     Route: 065
  2. FUROSEMIDE. [Suspect]
     Active Substance: FUROSEMIDE
     Dosage: 1 DF, 3X/DAY
     Route: 065
  3. CORTISONE [Suspect]
     Active Substance: CORTISONE
     Indication: PLATELET COUNT DECREASED
     Dosage: UNK
     Route: 065
  4. CARVEDILOL. [Suspect]
     Active Substance: CARVEDILOL
     Dosage: UNK UNK, QD
     Route: 065
  5. FUROSEMIDE. [Suspect]
     Active Substance: FUROSEMIDE
     Dosage: 3 DF, 1X/DAY
     Route: 065
  6. SIMVASTATIN. [Suspect]
     Active Substance: SIMVASTATIN
     Dosage: 1 DF, QD
     Route: 065
  7. PANTOPRAZOLE [Suspect]
     Active Substance: PANTOPRAZOLE
     Dosage: UNK UNK, QD
     Route: 065
  8. RANEXA [Suspect]
     Active Substance: RANOLAZINE
     Dosage: 2 DF, QD (SUSTAINED?RELEASE)
     Route: 065
  9. RANEXA [Suspect]
     Active Substance: RANOLAZINE
     Dosage: 1 DF, DAILY
  10. ENTRESTO [Suspect]
     Active Substance: SACUBITRIL\VALSARTAN
     Dosage: 2 DF, 1X/DAY
     Route: 065
  11. XIPAMIDE [Suspect]
     Active Substance: XIPAMIDE
     Dosage: 2 DF, 1X/DAY
     Route: 065
  12. XIPAMIDE [Suspect]
     Active Substance: XIPAMIDE
     Dosage: UNK UNK, QD
     Route: 065
  13. ENTRESTO [Suspect]
     Active Substance: SACUBITRIL\VALSARTAN
     Dosage: 2 DF, 1X/DAY
     Route: 065
     Dates: start: 202009
  14. ACETYLSALICYLIC ACID [Suspect]
     Active Substance: ASPIRIN
     Dosage: UNK UNK, QD
     Route: 065

REACTIONS (2)
  - Platelet count decreased [Not Recovered/Not Resolved]
  - Pancreatitis [Unknown]
